FAERS Safety Report 6636310-7 (Version None)
Quarter: 2010Q1

REPORT INFORMATION
  Report Type: 
  Country: None (occurrence: None)
  Receive Date: 20100226
  Receipt Date: 20090312
  Transmission Date: 20100710
  Serious: Yes (Hospitalization)
  Sender: FDA-Public Use
  Company Number: WAES 0903USA02462

PATIENT
  Age: 75 Year
  Sex: Female

DRUGS (8)
  1. PRINIVIL [Suspect]
     Dosage: PO
     Route: 048
     Dates: end: 20021104
  2. COUMADIN [Concomitant]
  3. LASIX [Concomitant]
  4. LEVAQUIN [Concomitant]
  5. PREVACID [Concomitant]
  6. ZOLOFT [Concomitant]
  7. AMIODARONE HCL [Concomitant]
  8. INHALED CORTICOSTEROID [Concomitant]

REACTIONS (4)
  - BLOOD CREATININE INCREASED [None]
  - DIZZINESS [None]
  - HYPOTENSION [None]
  - RENAL FAILURE ACUTE [None]
